FAERS Safety Report 6401448-6 (Version None)
Quarter: 2009Q4

REPORT INFORMATION
  Report Type: 
  Country: None (occurrence: None)
  Receive Date: 20091015
  Receipt Date: 20091008
  Transmission Date: 20100525
  Serious: Yes (Hospitalization)
  Sender: FDA-Public Use
  Company Number: AU-NOVOPROD-292655

PATIENT
  Age: 75 Year
  Sex: Male

DRUGS (1)
  1. MIXTARD HUMAN 70/30 [Suspect]
     Indication: DRUG USE FOR UNKNOWN INDICATION

REACTIONS (5)
  - BLOOD GLUCOSE INCREASED [None]
  - CIRCULATORY COLLAPSE [None]
  - DEHYDRATION [None]
  - DEVICE MALFUNCTION [None]
  - HYPERGLYCAEMIA [None]
